FAERS Safety Report 7032604-4 (Version None)
Quarter: 2010Q4

REPORT INFORMATION
  Report Type: 
  Country: None (occurrence: None)
  Receive Date: 20101007
  Receipt Date: 20100929
  Transmission Date: 20110411
  Serious: Yes (Death)
  Sender: FDA-Public Use
  Company Number: BR-ROCHE-730477

PATIENT
  Sex: Male
  Weight: 80 kg

DRUGS (2)
  1. BONIVA [Suspect]
     Dosage: START DATE: 2007 OR 2008
     Route: 048
     Dates: start: 20070101, end: 20100622
  2. MONOCORDIL [Concomitant]
     Dates: end: 20100101

REACTIONS (1)
  - NEOPLASM MALIGNANT [None]
